FAERS Safety Report 5014270-2 (Version None)
Quarter: 2006Q2

REPORT INFORMATION
  Report Type: 
  Country: None (occurrence: None)
  Receive Date: 20060414
  Receipt Date: 20060109
  Transmission Date: 20061013
  Serious: No
  Sender: FDA-Public Use
  Company Number: 2005SP004310

PATIENT
  Age: 76 Year
  Sex: Male
  Weight: 76.2043 kg

DRUGS (9)
  1. LUNESTA [Suspect]
     Indication: INSOMNIA
     Dosage: 2 MG HS ORAL
     Route: 048
     Dates: start: 20050101, end: 20050101
  2. GUAIFENESIN W/ PSEUDOEPHEDRINE [Suspect]
     Route: 065
     Dates: start: 20050101
  3. ATORVASTATIN CALCIUM [Concomitant]
  4. THYROID TAB [Concomitant]
  5. LOPRESSOR [Concomitant]
  6. AMIODARONE [Concomitant]
  7. SALICYLIC ACID [Concomitant]
  8. NIACIN [Concomitant]
  9. NICOBID [Concomitant]

REACTIONS (3)
  - DRUG INEFFECTIVE [None]
  - INSOMNIA [None]
  - NIGHTMARE [None]
